FAERS Safety Report 4674958-X (Version None)
Quarter: 2005Q2

REPORT INFORMATION
  Report Type: 
  Country: None (occurrence: None)
  Receive Date: 20050525
  Receipt Date: 20050509
  Transmission Date: 20051028
  Serious: Yes (Other)
  Sender: FDA-Public Use
  Company Number: ATO-05-0160

PATIENT
  Age: 50 Year
  Sex: Female
  Weight: 68.4932 kg

DRUGS (5)
  1. TRISENOX [Suspect]
     Indication: MULTIPLE MYELOMA
     Dosage: 18 MG (18 MILLICURIES, BIW), IVI
     Route: 042
     Dates: start: 20050317, end: 20050501
  2. PREDNISONE TAB [Suspect]
     Indication: MULTIPLE MYELOMA
     Dosage: 100 MG (100 MG, DAYS 1-4 Q 28 DAY CYCLE), IVI
     Route: 042
     Dates: start: 20050317
  3. PAMIDRONATE DISODIUM [Suspect]
     Indication: MULTIPLE MYELOMA
     Dosage: 60 MG (60 MG, Q MONTH), IVI
     Route: 042
     Dates: start: 20050317
  4. ACYCLOVIR [Concomitant]
  5. VALIUM [Concomitant]

REACTIONS (1)
  - FACIAL PALSY [None]
